FAERS Safety Report 8835153 (Version 1)
Quarter: 2012Q4

REPORT INFORMATION
  Report Type: 
  Country: AT (occurrence: AT)
  Receive Date: 20121011
  Receipt Date: 20121011
  Transmission Date: 20130627
  Serious: Yes (Hospitalization)
  Sender: FDA-Public Use
  Company Number: AT-PFIZER INC-2012250616

PATIENT
  Age: 15 Year
  Sex: Female
  Weight: 29 kg

DRUGS (9)
  1. ARGATRA [Suspect]
     Indication: HEPARIN-INDUCED THROMBOCYTOPENIA
     Dosage: UNK
     Route: 065
  2. TAMIFLU [Concomitant]
     Indication: INFLUENZA
     Dosage: 60 mg, 2x/day
  3. PIPERACILLIN [Concomitant]
     Indication: INFLUENZA
     Dosage: UNK
  4. TAZOBACTAM [Concomitant]
     Indication: INFLUENZA
     Dosage: UNK
  5. AMIODARONE [Concomitant]
     Indication: VENTRICULAR FIBRILLATION
     Dosage: UNK
  6. LIDOCAINE [Concomitant]
     Indication: VENTRICULAR FIBRILLATION
     Dosage: UNK
  7. DOBUTAMINE [Concomitant]
     Indication: HAEMODYNAMIC INSTABILITY
  8. MILRINONE [Concomitant]
     Indication: HAEMODYNAMIC INSTABILITY
     Dosage: UNK
  9. LEVOSIMENDAN [Concomitant]
     Indication: HAEMODYNAMIC INSTABILITY
     Dosage: UNK

REACTIONS (2)
  - Off label use [Recovering/Resolving]
  - Cardiogenic shock [Recovering/Resolving]
